FAERS Safety Report 9399954 (Version 1)
Quarter: 2013Q3

REPORT INFORMATION
  Report Type: Spontaneous
  Country: US (occurrence: US)
  Receive Date: 20130715
  Receipt Date: 20130715
  Transmission Date: 20140515
  Serious: Yes (Other)
  Sender: FDA-Public Use
  Company Number: US-PFIZER INC-2013204405

PATIENT
  Age: 56 Year
  Sex: Female
  Weight: 61.22 kg

DRUGS (2)
  1. LYRICA [Suspect]
     Indication: NEURALGIA
     Dosage: 200 MG, 3X/DAY
     Route: 048
  2. NORCO [Concomitant]
     Dosage: 325/10 MG, UNK

REACTIONS (2)
  - Musculoskeletal disorder [Unknown]
  - Back disorder [Unknown]
